FAERS Safety Report 6547372-X (Version None)
Quarter: 2010Q1

REPORT INFORMATION
  Report Type: 
  Country: None (occurrence: None)
  Receive Date: 20100122
  Receipt Date: 20100115
  Transmission Date: 20100710
  Serious: Yes (Death)
  Sender: FDA-Public Use
  Company Number: JP-ABBOTT-10P-087-0620687-00

PATIENT
  Age: 82 Year
  Sex: Male

DRUGS (15)
  1. LEUPLIN SR FOR INJECTION 11.25 MG [Suspect]
     Indication: PROSTATE CANCER STAGE IV
     Route: 058
     Dates: start: 20080812, end: 20080812
  2. BICALUTAMIDE [Concomitant]
     Indication: PROSTATE CANCER STAGE IV
     Route: 048
     Dates: start: 20081007, end: 20081109
  3. CHLORMADINONE ACETATE TAB [Concomitant]
     Indication: PROSTATE CANCER STAGE IV
     Route: 048
     Dates: end: 20080921
  4. ESTRAMUSTINE PHOSPHATE SODIUM [Concomitant]
     Indication: PROSTATE CANCER STAGE IV
     Route: 048
     Dates: start: 20080922, end: 20081006
  5. DECADRON [Concomitant]
     Indication: PROSTATE CANCER STAGE IV
     Route: 048
     Dates: start: 20081110, end: 20081210
  6. ADONA [Concomitant]
     Indication: HAEMATURIA
     Route: 048
     Dates: end: 20081116
  7. MAGLAX [Concomitant]
     Indication: CONSTIPATION
     Route: 048
     Dates: end: 20081118
  8. SENEVACUL [Concomitant]
     Indication: CONSTIPATION
     Route: 048
     Dates: end: 20081110
  9. LAXORERON [Concomitant]
     Indication: CONSTIPATION
     Route: 048
     Dates: end: 20081118
  10. SILODOSIN [Concomitant]
     Indication: BENIGN PROSTATIC HYPERPLASIA
     Route: 048
     Dates: end: 20081020
  11. SELBEX [Concomitant]
     Indication: GASTRITIS
     Route: 048
     Dates: start: 20081007, end: 20081217
  12. ZYLORIC [Concomitant]
     Indication: HYPERURICAEMIA
     Route: 048
     Dates: start: 20081007, end: 20081217
  13. DEPAS [Concomitant]
     Indication: INSOMNIA
     Route: 048
     Dates: start: 20081007, end: 20081217
  14. LASIX [Concomitant]
     Indication: OEDEMA
     Route: 048
     Dates: start: 20081110, end: 20081117
  15. LOXONIN [Concomitant]
     Indication: BACK PAIN
     Route: 048
     Dates: start: 20081118, end: 20081217

REACTIONS (1)
  - PROSTATE CANCER STAGE IV [None]
